FAERS Safety Report 16425291 (Version 2)
Quarter: 2019Q2

REPORT INFORMATION
  Report Type: Report from Study
  Country: JP (occurrence: JP)
  Receive Date: 20190613
  Receipt Date: 20190619
  Transmission Date: 20190711
  Serious: Yes (Hospitalization, Other)
  Sender: FDA-Public Use
  Company Number: JP-SA-2018SA174866

PATIENT
  Age: 69 Year
  Sex: Male
  Weight: 37.3 kg

DRUGS (9)
  1. IRINOTECAN [Suspect]
     Active Substance: IRINOTECAN
     Indication: COLON CANCER
     Dosage: 150 MG/M2, QOW
     Route: 065
     Dates: start: 20180511, end: 20180608
  2. FLUOROURACIL. [Suspect]
     Active Substance: FLUOROURACIL
     Dosage: 2400 MG/M2, QOW
     Route: 041
     Dates: start: 20180511, end: 20180608
  3. AFLIBERCEPT [Suspect]
     Active Substance: AFLIBERCEPT
     Indication: COLON CANCER
     Dosage: 4 MG/KG, QOW
     Route: 041
     Dates: start: 20180511, end: 20180608
  4. CALCIUM FOLINATE [Suspect]
     Active Substance: LEUCOVORIN CALCIUM
     Dosage: 200 MG/M2, 1X
     Route: 065
     Dates: start: 20180813, end: 20180813
  5. FLUOROURACIL. [Suspect]
     Active Substance: FLUOROURACIL
     Indication: COLON CANCER
     Dosage: 400 MG/M2, QOW
     Route: 040
     Dates: start: 20180511, end: 20180608
  6. FLUOROURACIL. [Suspect]
     Active Substance: FLUOROURACIL
     Dosage: 2400 MG/M2, 1X
     Route: 041
     Dates: start: 20180813, end: 20180815
  7. CALCIUM FOLINATE [Suspect]
     Active Substance: LEUCOVORIN CALCIUM
     Indication: COLON CANCER
     Dosage: 200 MG/M2, QOW
     Route: 065
     Dates: start: 20180511, end: 20180608
  8. FLUOROURACIL. [Suspect]
     Active Substance: FLUOROURACIL
     Dosage: 400 MG/M2, 1X
     Route: 040
     Dates: start: 20180813, end: 20180813
  9. IRINOTECAN [Suspect]
     Active Substance: IRINOTECAN
     Dosage: 120 MG, 1X
     Route: 065
     Dates: start: 20180813, end: 20180813

REACTIONS (3)
  - Renal vein thrombosis [Recovered/Resolved]
  - Neutrophil count decreased [Recovered/Resolved]
  - White blood cell count decreased [Recovered/Resolved]

NARRATIVE: CASE EVENT DATE: 20180525
